FAERS Safety Report 6302420-7 (Version None)
Quarter: 2009Q3

REPORT INFORMATION
  Report Type: 
  Country: None (occurrence: None)
  Receive Date: 20090810
  Receipt Date: 20090729
  Transmission Date: 20100115
  Serious: Yes (Other)
  Sender: FDA-Public Use
  Company Number: US-JNJFOC-20090800342

PATIENT
  Sex: Male
  Weight: 96 kg

DRUGS (6)
  1. REMICADE [Suspect]
     Route: 042
  2. REMICADE [Suspect]
     Indication: CROHN'S DISEASE
     Dosage: 5 INFUSIONS PRIOR TO REGISTRY
     Route: 042
  3. FOLIC ACID [Concomitant]
  4. CALCIUM AND VITAMIN D [Concomitant]
  5. ACETAMINOPHEN [Concomitant]
     Indication: PREMEDICATION
  6. ANTIHISTAMINES [Concomitant]
     Indication: PREMEDICATION

REACTIONS (1)
  - THYROIDITIS [None]
